FAERS Safety Report 21438072 (Version 17)
Quarter: 2023Q2

REPORT INFORMATION
  Report Type: Spontaneous
  Country: CA (occurrence: CA)
  Receive Date: 20221011
  Receipt Date: 20230414
  Transmission Date: 20230722
  Serious: Yes (Other)
  Sender: FDA-Public Use
  Company Number: CA-CELLTRION INC.-2022CA016215

PATIENT

DRUGS (25)
  1. INFLECTRA [Suspect]
     Active Substance: INFLIXIMAB-DYYB
     Indication: Colitis ulcerative
     Dosage: 1000 MG, WEEK 0 INDUCTION
     Route: 042
     Dates: start: 20220927
  2. INFLECTRA [Suspect]
     Active Substance: INFLIXIMAB-DYYB
     Dosage: 500 MG EVERY 4 WEEKS (AS REPORTED)
     Route: 042
     Dates: start: 20220927
  3. INFLECTRA [Suspect]
     Active Substance: INFLIXIMAB-DYYB
     Dosage: 1000 MG, WEEK 1 INDUCTION (1000 MG FREQUENCY: 8 WEEKS)
     Route: 042
     Dates: start: 20221004
  4. INFLECTRA [Suspect]
     Active Substance: INFLIXIMAB-DYYB
     Dosage: 1 DF
     Route: 042
     Dates: start: 202210
  5. INFLECTRA [Suspect]
     Active Substance: INFLIXIMAB-DYYB
     Dosage: 1000 MG, AT WEEKS 0,1,2,4,6 AND THEN Q8WEEKS.
     Route: 042
  6. INFLECTRA [Suspect]
     Active Substance: INFLIXIMAB-DYYB
     Dosage: 1000 MG, EVERY 8 WEEKS
     Route: 042
     Dates: start: 20221012
  7. INFLECTRA [Suspect]
     Active Substance: INFLIXIMAB-DYYB
     Dosage: 1000 MG, WEEKS 0,1,2,4,6 AND THEN Q8WEEKS (WEEK 4 CIRCLED)
     Route: 042
     Dates: start: 20221025
  8. INFLECTRA [Suspect]
     Active Substance: INFLIXIMAB-DYYB
     Dosage: 1000 MG, EVERY 8 WEEKS
     Route: 042
     Dates: start: 20221108
  9. INFLECTRA [Suspect]
     Active Substance: INFLIXIMAB-DYYB
     Dosage: 1000 MG, EVERY 8 WEEKS
     Route: 042
     Dates: start: 20221108
  10. INFLECTRA [Suspect]
     Active Substance: INFLIXIMAB-DYYB
     Dosage: 500 MG, EVERY 4 WEEKS
     Route: 042
     Dates: start: 20221125
  11. INFLECTRA [Suspect]
     Active Substance: INFLIXIMAB-DYYB
     Dosage: 500 MG, EVERY 4 WEEKS
     Route: 042
     Dates: start: 20221206
  12. INFLECTRA [Suspect]
     Active Substance: INFLIXIMAB-DYYB
     Dosage: 500 MG, EVERY 4 WEEKS
     Route: 042
     Dates: start: 20230103
  13. INFLECTRA [Suspect]
     Active Substance: INFLIXIMAB-DYYB
     Dosage: 500 MG, EVERY 4 WEEKS
     Route: 042
     Dates: start: 20230131
  14. INFLECTRA [Suspect]
     Active Substance: INFLIXIMAB-DYYB
     Dosage: 500 MG, EVERY 4 WEEKS
     Route: 042
     Dates: start: 20230228
  15. AZATHIOPRINE [Concomitant]
     Active Substance: AZATHIOPRINE
     Indication: Crohn^s disease
     Dosage: 200 MG, 1X/DAY OD
     Route: 048
  16. COVID-19 VACCINE [Concomitant]
     Indication: COVID-19 immunisation
     Dosage: DOSE 1, SINGLE
  17. COVID-19 VACCINE [Concomitant]
     Dosage: DOSE 2, SINGLE
  18. COVID-19 VACCINE [Concomitant]
     Dosage: DOSE NUMBER UNKNOWN (BOOSTER), SINGLE
     Dates: start: 202301, end: 202301
  19. IMURAN [Concomitant]
     Active Substance: AZATHIOPRINE
     Dosage: 200 MG, DAILY
     Route: 048
  20. PREDNISONE [Concomitant]
     Active Substance: PREDNISONE
     Indication: Crohn^s disease
     Dosage: 20 MG, 1X/DAY (20 MG, QD)
     Route: 048
  21. PREDNISONE [Concomitant]
     Active Substance: PREDNISONE
     Indication: Colitis ulcerative
     Dosage: 20 MG, DAILY
     Route: 048
  22. PREDNISONE [Concomitant]
     Active Substance: PREDNISONE
     Dosage: 15 MG, DAILY
     Route: 048
  23. PREDNISONE [Concomitant]
     Active Substance: PREDNISONE
     Dosage: 12.5 MG, DAILY
     Route: 048
     Dates: start: 20230130
  24. PREDNISONE [Concomitant]
     Active Substance: PREDNISONE
     Dosage: 2.5 MG, 1X/DAY
     Route: 048
     Dates: start: 20230130
  25. PREDNISONE [Concomitant]
     Active Substance: PREDNISONE
     Dosage: 30 MG, DAILY
     Route: 048

REACTIONS (9)
  - Appendicectomy [Unknown]
  - Condition aggravated [Recovering/Resolving]
  - Drug ineffective [Unknown]
  - Therapy non-responder [Unknown]
  - Gastrointestinal disorder [Unknown]
  - Weight increased [Unknown]
  - Headache [Unknown]
  - Melanocytic naevus [Unknown]
  - Off label use [Unknown]

NARRATIVE: CASE EVENT DATE: 20220101
